FAERS Safety Report 10237369 (Version 3)
Quarter: 2015Q1

REPORT INFORMATION
  Report Type: Spontaneous
  Country: CA (occurrence: CA)
  Receive Date: 20140613
  Receipt Date: 20150303
  Transmission Date: 20150720
  Serious: Yes (Hospitalization)
  Sender: FDA-Public Use
  Company Number: CA-JNJFOC-20140602025

PATIENT
  Age: 56 Year
  Sex: Male
  Weight: 159 kg

DRUGS (6)
  1. RITUXAN [Suspect]
     Active Substance: RITUXIMAB
     Indication: CHRONIC LYMPHOCYTIC LEUKAEMIA
     Route: 042
     Dates: start: 20120514
  2. RITUXAN [Suspect]
     Active Substance: RITUXIMAB
     Indication: CHRONIC LYMPHOCYTIC LEUKAEMIA
     Route: 042
     Dates: start: 20130207
  3. LEUKERAN [Concomitant]
     Active Substance: CHLORAMBUCIL
     Indication: PRODUCT USED FOR UNKNOWN INDICATION
     Route: 065
  4. CAMPATH [Concomitant]
     Active Substance: ALEMTUZUMAB
     Route: 065
  5. BENADRYL [Suspect]
     Active Substance: DIPHENHYDRAMINE HYDROCHLORIDE
     Indication: RESTLESSNESS
     Route: 065
  6. RITUXAN [Suspect]
     Active Substance: RITUXIMAB
     Indication: CHRONIC LYMPHOCYTIC LEUKAEMIA
     Route: 042
     Dates: start: 20120924

REACTIONS (7)
  - Somnolence [Unknown]
  - Local swelling [Not Recovered/Not Resolved]
  - Rectal abscess [Recovered/Resolved]
  - Sleep apnoea syndrome [Unknown]
  - Nausea [Recovered/Resolved]
  - Oxygen saturation decreased [Unknown]
  - Restlessness [Unknown]

NARRATIVE: CASE EVENT DATE: 20120924
